FAERS Safety Report 10218995 (Version 2)
Quarter: 2014Q3

REPORT INFORMATION
  Report Type: Spontaneous
  Country: US (occurrence: US)
  Receive Date: 20140605
  Receipt Date: 20140702
  Transmission Date: 20150326
  Serious: Yes (Death, Life-Threatening, Hospitalization, Other)
  Sender: FDA-Public Use
  Company Number: US-MERCK-1406USA002174

PATIENT
  Sex: Male
  Weight: 102.4 kg

DRUGS (2)
  1. JANUVIA [Suspect]
     Active Substance: SITAGLIPTIN PHOSPHATE
     Indication: TYPE 2 DIABETES MELLITUS
     Dosage: 100 MG, QD
     Route: 048
     Dates: start: 20090706, end: 20090913
  2. JANUVIA [Suspect]
     Active Substance: SITAGLIPTIN PHOSPHATE
     Dosage: 100 MG, QD
     Route: 048
     Dates: start: 20111107, end: 20130104

REACTIONS (17)
  - Radiotherapy [Unknown]
  - Intestinal resection [Unknown]
  - Radiotherapy [Unknown]
  - Fat necrosis [Unknown]
  - Pancreatic carcinoma recurrent [Fatal]
  - Drain placement [Unknown]
  - Pancreatectomy [Unknown]
  - Ileostomy [Unknown]
  - Pancreatitis chronic [Unknown]
  - Explorative laparotomy [Unknown]
  - Atelectasis [Unknown]
  - Pancreatic cyst [Unknown]
  - Abscess [Unknown]
  - Fistula [Unknown]
  - Drug hypersensitivity [Unknown]
  - Adenocarcinoma pancreas [Unknown]
  - Splenectomy [Unknown]

NARRATIVE: CASE EVENT DATE: 2009
